FAERS Safety Report 25085713 (Version 2)
Quarter: 2025Q3

REPORT INFORMATION
  Report Type: Spontaneous
  Country: JP (occurrence: JP)
  Receive Date: 20250317
  Receipt Date: 20250810
  Transmission Date: 20251021
  Serious: Yes (Other)
  Sender: ALEXION PHARMACEUTICALS
  Company Number: JP-ASTELLAS-2025-AER-013409

PATIENT
  Age: 8 Decade
  Sex: Male

DRUGS (5)
  1. QUETIAPINE FUMARATE [Suspect]
     Active Substance: QUETIAPINE FUMARATE
     Indication: Bipolar disorder
     Route: 065
  2. HALOPERIDOL [Suspect]
     Active Substance: HALOPERIDOL
     Indication: Bipolar disorder
     Route: 065
  3. RISPERIDONE [Suspect]
     Active Substance: RISPERIDONE
     Indication: Bipolar disorder
     Route: 065
  4. RISPERIDONE [Suspect]
     Active Substance: RISPERIDONE
     Route: 065
  5. RISPERIDONE [Suspect]
     Active Substance: RISPERIDONE
     Route: 065

REACTIONS (5)
  - Pneumonia aspiration [Unknown]
  - Extrapyramidal disorder [Recovering/Resolving]
  - Somnolence [Recovering/Resolving]
  - Bradycardia [Not Recovered/Not Resolved]
  - Off label use [Unknown]
